FAERS Safety Report 7670171-2 (Version None)
Quarter: 2011Q3

REPORT INFORMATION
  Report Type: 
  Country: None (occurrence: None)
  Receive Date: 20110808
  Receipt Date: 20110728
  Transmission Date: 20111222
  Serious: Yes (Hospitalization)
  Sender: FDA-Public Use
  Company Number: US-ASTRAZENECA-2010SE50192

PATIENT
  Age: 38 Year
  Sex: Female

DRUGS (14)
  1. TRICOR [Concomitant]
     Indication: CARDIAC DISORDER
  2. LISINOPRIL [Concomitant]
     Indication: CARDIAC DISORDER
     Route: 048
  3. SEROQUEL [Suspect]
     Route: 048
  4. XANAX [Concomitant]
  5. AMBIEN [Concomitant]
     Indication: INSOMNIA
  6. LORTAB [Concomitant]
     Indication: PAIN
  7. LAMICTAL [Concomitant]
  8. SEROQUEL [Suspect]
     Indication: BIPOLAR DISORDER
     Route: 048
  9. RISPERIDONE [Concomitant]
  10. SOMA [Concomitant]
     Indication: PAIN
  11. WELLBUTRIN [Concomitant]
  12. PLAVIX [Concomitant]
     Indication: CARDIAC DISORDER
  13. PRAZOSIN HCL [Concomitant]
     Indication: CARDIAC DISORDER
  14. SIMVASTATIN [Concomitant]
     Indication: CARDIAC DISORDER

REACTIONS (4)
  - CORONARY ARTERIAL STENT INSERTION [None]
  - INTENTIONAL SELF-INJURY [None]
  - CARDIAC DISORDER [None]
  - SUICIDE ATTEMPT [None]
